FAERS Safety Report 14967085 (Version 1)
Quarter: 2018Q2

REPORT INFORMATION
  Report Type: Report from Study
  Country: US (occurrence: US)
  Receive Date: 20180604
  Receipt Date: 20180604
  Transmission Date: 20180711
  Serious: Yes (Other)
  Sender: FDA-Public Use
  Company Number: US-CHEPLA-1930379

PATIENT

DRUGS (2)
  1. ALL-TRANS RETINOIC ACID (ATRA) [Suspect]
     Active Substance: TRETINOIN
     Indication: CHRONIC MYELOID LEUKAEMIA
     Dosage: TWICE DAILY; 3 DAYS ON/4 DAYS OFF
     Route: 048
  2. INTERFERON-ALPHA 2A [Suspect]
     Active Substance: INTERFERON ALFA-2A
     Indication: CHRONIC MYELOID LEUKAEMIA
     Dosage: 3 MU/MM2 DAILY FOR A MINIMUM OF 28 DAYS
     Route: 065

REACTIONS (13)
  - Neurotoxicity [None]
  - Anaemia [Unknown]
  - Fatigue [Unknown]
  - Pulmonary toxicity [None]
  - Pyrexia [Unknown]
  - Skin toxicity [Unknown]
  - Haematotoxicity [None]
  - Bone pain [Unknown]
  - Product use in unapproved indication [Recovered/Resolved]
  - Chronic myeloid leukaemia [None]
  - Malignant neoplasm progression [None]
  - Leukopenia [Unknown]
  - Thrombocytopenia [Unknown]
